FAERS Safety Report 8369646-2 (Version None)
Quarter: 2012Q2

REPORT INFORMATION
  Report Type: 
  Country: None (occurrence: None)
  Receive Date: 20120518
  Receipt Date: 20120503
  Transmission Date: 20120825
  Serious: Yes (Hospitalization, Other)
  Sender: FDA-Public Use
  Company Number: US-MYLANLABS-2009AC000064

PATIENT
  Age: 83 Year
  Sex: Male
  Weight: 58.06 kg

DRUGS (33)
  1. VISTARIL [Concomitant]
  2. DITROPAN [Concomitant]
  3. CLONIDINE [Concomitant]
  4. CEPHALEXIN [Concomitant]
  5. DYAZIDE [Concomitant]
  6. OXYBUTYNIN [Concomitant]
  7. PROMETHAZINE [Concomitant]
  8. IMODIUM [Concomitant]
  9. LASIX [Concomitant]
  10. LOMOTIL [Concomitant]
  11. TRIAMTERENE [Concomitant]
  12. LEVOTHYROXINE SODIUM [Concomitant]
  13. POTASSIUM CHLORIDE [Concomitant]
  14. CARBIDOPA [Concomitant]
  15. HYDROCODONE [Concomitant]
  16. LISINOPRIL [Concomitant]
  17. HYDROCHLOROTHIAZIDE [Concomitant]
  18. DIGOXIN [Suspect]
     Route: 048
     Dates: start: 20000218, end: 20091007
  19. PENTOXIFYLLINE [Concomitant]
  20. COREG [Concomitant]
  21. RELAFEN [Concomitant]
  22. ARICEPT [Concomitant]
  23. WARFARIN SODIUM [Concomitant]
  24. SERTRALINE HYDROCHLORIDE [Concomitant]
  25. FLAGYL [Concomitant]
  26. TAGAMET [Concomitant]
  27. VESICARE [Concomitant]
  28. PRILOSEC [Concomitant]
  29. TRAMADOL HYDROCHLORIDE [Concomitant]
  30. NITROGLYCERIN [Concomitant]
  31. BONIVA [Concomitant]
  32. PROTONIX [Concomitant]
  33. MICRO-K [Concomitant]

REACTIONS (91)
  - ILL-DEFINED DISORDER [None]
  - OVERDOSE [None]
  - JOINT INJURY [None]
  - ATRIAL FIBRILLATION [None]
  - ORTHOSTATIC INTOLERANCE [None]
  - CONTUSION [None]
  - INTERSTITIAL LUNG DISEASE [None]
  - SQUAMOUS CELL CARCINOMA OF SKIN [None]
  - COMPUTERISED TOMOGRAM ABNORMAL [None]
  - HYPOAESTHESIA [None]
  - MUSCLE RIGIDITY [None]
  - TREMOR [None]
  - VOMITING [None]
  - PAIN [None]
  - BRADYCARDIA [None]
  - FALL [None]
  - COMMUNICATION DISORDER [None]
  - CEREBROVASCULAR ACCIDENT [None]
  - DEMENTIA ALZHEIMER'S TYPE [None]
  - MITRAL VALVE INCOMPETENCE [None]
  - ARTHRALGIA [None]
  - WALKING AID USER [None]
  - TOXICITY TO VARIOUS AGENTS [None]
  - SYNCOPE [None]
  - PARKINSON'S DISEASE [None]
  - DEHYDRATION [None]
  - ANAEMIA [None]
  - CEREBRAL ATROPHY [None]
  - ESCHERICHIA SEPSIS [None]
  - FATIGUE [None]
  - GAIT DISTURBANCE [None]
  - GASTROENTERITIS [None]
  - JOINT RANGE OF MOTION DECREASED [None]
  - MICROANGIOPATHY [None]
  - NAUSEA [None]
  - SPINAL COMPRESSION FRACTURE [None]
  - EMOTIONAL DISTRESS [None]
  - HYPOTENSION [None]
  - FACE INJURY [None]
  - RIB FRACTURE [None]
  - HYPERTONIC BLADDER [None]
  - OEDEMA PERIPHERAL [None]
  - TRANSFUSION [None]
  - ARTERIAL THROMBOSIS LIMB [None]
  - BASAL CELL CARCINOMA [None]
  - PERIPHERAL EMBOLISM [None]
  - ANXIETY [None]
  - BACK PAIN [None]
  - BALANCE DISORDER [None]
  - CARDIOMEGALY [None]
  - RALES [None]
  - SCOLIOSIS [None]
  - SUBCUTANEOUS HAEMATOMA [None]
  - THROMBOEMBOLECTOMY [None]
  - X-RAY ABNORMAL [None]
  - ANHEDONIA [None]
  - DYSARTHRIA [None]
  - MUSCULAR WEAKNESS [None]
  - DIARRHOEA [None]
  - VENTRICULAR TACHYCARDIA [None]
  - ENCEPHALOPATHY [None]
  - LEFT VENTRICULAR HYPERTROPHY [None]
  - CONFUSIONAL STATE [None]
  - DYSPNOEA [None]
  - GASTRITIS [None]
  - HAEMATOMA [None]
  - LABORATORY TEST ABNORMAL [None]
  - OSTEOPENIA [None]
  - PAIN IN EXTREMITY [None]
  - SKIN INJURY [None]
  - URINARY TRACT INFECTION [None]
  - VERTEBROPLASTY [None]
  - INJURY [None]
  - HYPOVOLAEMIA [None]
  - HEMIPARESIS [None]
  - HEADACHE [None]
  - AMNESIA [None]
  - TRANSIENT ISCHAEMIC ATTACK [None]
  - FACIAL BONES FRACTURE [None]
  - HEPATIC STEATOSIS [None]
  - MUSCLE SPASMS [None]
  - ECONOMIC PROBLEM [None]
  - URGE INCONTINENCE [None]
  - ASTHENIA [None]
  - VIITH NERVE PARALYSIS [None]
  - EXCORIATION [None]
  - HEART RATE IRREGULAR [None]
  - JOINT SWELLING [None]
  - MENTAL STATUS CHANGES [None]
  - PYREXIA [None]
  - SWELLING FACE [None]
